FAERS Safety Report 9522443 (Version 2)
Quarter: 2013Q3

REPORT INFORMATION
  Report Type: Spontaneous
  Country: CA (occurrence: CA)
  Receive Date: 20130913
  Receipt Date: 20130913
  Transmission Date: 20140515
  Serious: Yes (Disabling)
  Sender: FDA-Public Use
  Company Number: CA-ASTRAZENECA-2013SE62739

PATIENT
  Age: 67 Year
  Sex: Female

DRUGS (9)
  1. NEXIUM [Suspect]
     Route: 048
     Dates: start: 20100811, end: 2013
  2. MEDICATION FOR BLOOD PRESSURE [Concomitant]
     Indication: BLOOD PRESSURE ABNORMAL
  3. MEDICATION FOR CHOLESTEROL [Concomitant]
     Indication: BLOOD CHOLESTEROL ABNORMAL
  4. ANTIDEPRESSANT [Concomitant]
  5. PREVACID [Concomitant]
  6. CITALOPRAM [Concomitant]
     Dates: start: 201212
  7. EZETROL [Concomitant]
     Dates: start: 200901
  8. IRBESARTAN [Concomitant]
     Dates: start: 201109
  9. NASONEX [Concomitant]
     Dosage: PRN

REACTIONS (1)
  - Dry eye [Not Recovered/Not Resolved]
